FAERS Safety Report 7000878-1 (Version None)
Quarter: 2010Q3

REPORT INFORMATION
  Report Type: 
  Country: None (occurrence: None)
  Receive Date: 20100920
  Receipt Date: 20100908
  Transmission Date: 20110219
  Serious: Yes (Other)
  Sender: FDA-Public Use
  Company Number: PHHY2010JP52186

PATIENT
  Age: 65 Year
  Sex: Male

DRUGS (3)
  1. DIOVAN HCT [Suspect]
     Dosage: 1 DF, QD
     Route: 048
     Dates: start: 20100804, end: 20100804
  2. ACTOS [Concomitant]
     Route: 048
  3. BEHYD [Concomitant]
     Dosage: 4 MG AT 0.25 TABLET DAILY

REACTIONS (2)
  - ANURIA [None]
  - OEDEMA [None]
